FAERS Safety Report 24196524 (Version 1)
Quarter: 2024Q3

REPORT INFORMATION
  Report Type: Spontaneous
  Country: RU (occurrence: RU)
  Receive Date: 20240810
  Receipt Date: 20240810
  Transmission Date: 20241017
  Serious: Yes (Other)
  Sender: ROCHE
  Company Number: RU-ROCHE-10000050322

PATIENT

DRUGS (2)
  1. ATEZOLIZUMAB [Suspect]
     Active Substance: ATEZOLIZUMAB
     Indication: Lung neoplasm malignant
     Route: 042
     Dates: start: 20240119
  2. GOSERELIN [Concomitant]
     Active Substance: GOSERELIN

REACTIONS (4)
  - Azotaemia [Unknown]
  - Lung adenocarcinoma [Unknown]
  - Metastases to peritoneum [Unknown]
  - Ascites [Unknown]
